FAERS Safety Report 13408835 (Version 2)
Quarter: 2017Q4

REPORT INFORMATION
  Report Type: Spontaneous
  Country: US (occurrence: US)
  Receive Date: 20170406
  Receipt Date: 20171123
  Transmission Date: 20180320
  Serious: No
  Sender: FDA-Public Use
  Company Number: US-JNJFOC-20170225483

PATIENT
  Sex: Male

DRUGS (12)
  1. RISPERDAL CONSTA [Suspect]
     Active Substance: RISPERIDONE
     Indication: ABNORMAL BEHAVIOUR
     Route: 030
     Dates: start: 20040902, end: 20050117
  2. RISPERDAL CONSTA [Suspect]
     Active Substance: RISPERIDONE
     Indication: ANGER
     Route: 030
     Dates: start: 20040902, end: 20050117
  3. RISPERDAL CONSTA [Suspect]
     Active Substance: RISPERIDONE
     Indication: ANGER
     Route: 030
     Dates: start: 20040622, end: 20040715
  4. RISPERDAL [Suspect]
     Active Substance: RISPERIDONE
     Indication: ABNORMAL BEHAVIOUR
     Dosage: VARYING DOSES OF UNSPECIFIED DOSE AND 0.25 MG
     Route: 048
     Dates: start: 20050620, end: 20060606
  5. RISPERDAL [Suspect]
     Active Substance: RISPERIDONE
     Indication: ABNORMAL BEHAVIOUR
     Dosage: VARYING DOSES OF 0.25 MG, 0.5 MG AND 01 MG
     Route: 048
     Dates: start: 20040803, end: 20050204
  6. RISPERDAL [Suspect]
     Active Substance: RISPERIDONE
     Indication: ANGER
     Route: 048
     Dates: start: 20040715
  7. RISPERDAL [Suspect]
     Active Substance: RISPERIDONE
     Indication: ABNORMAL BEHAVIOUR
     Route: 048
     Dates: start: 20040715
  8. RISPERDAL CONSTA [Suspect]
     Active Substance: RISPERIDONE
     Indication: ABNORMAL BEHAVIOUR
     Route: 030
     Dates: start: 20050228, end: 20050502
  9. RISPERDAL [Suspect]
     Active Substance: RISPERIDONE
     Indication: ANGER
     Dosage: VARYING DOSES OF UNSPECIFIED DOSE AND 0.25 MG
     Route: 048
     Dates: start: 20050620, end: 20060606
  10. RISPERDAL [Suspect]
     Active Substance: RISPERIDONE
     Indication: ANGER
     Dosage: VARYING DOSES OF 0.25 MG, 0.5 MG AND 01 MG
     Route: 048
     Dates: start: 20040803, end: 20050204
  11. RISPERDAL CONSTA [Suspect]
     Active Substance: RISPERIDONE
     Indication: ABNORMAL BEHAVIOUR
     Route: 030
     Dates: start: 20040622, end: 20040715
  12. RISPERDAL CONSTA [Suspect]
     Active Substance: RISPERIDONE
     Indication: ANGER
     Route: 030
     Dates: start: 20050228, end: 20050502

REACTIONS (2)
  - Gynaecomastia [Unknown]
  - Emotional disorder [Unknown]
